FAERS Safety Report 9583670 (Version 1)
Quarter: 2013Q4

REPORT INFORMATION
  Report Type: Spontaneous
  Country: US (occurrence: US)
  Receive Date: 20131002
  Receipt Date: 20131002
  Transmission Date: 20140711
  Serious: No
  Sender: FDA-Public Use
  Company Number: US-AMGEN-USASP2013048343

PATIENT
  Age: 50 Year
  Sex: Female
  Weight: 47.17 kg

DRUGS (2)
  1. ENBREL [Suspect]
     Indication: PRODUCT USED FOR UNKNOWN INDICATION
     Dosage: 50 MG, QWK
     Route: 065
  2. ARAVA [Concomitant]
     Dosage: 10 MG, UNK

REACTIONS (2)
  - Contusion [Recovered/Resolved]
  - Blood pressure increased [Unknown]
